FAERS Safety Report 20781027 (Version 1)
Quarter: 2022Q2

REPORT INFORMATION
  Report Type: Spontaneous
  Country: US (occurrence: US)
  Receive Date: 20220504
  Receipt Date: 20220504
  Transmission Date: 20220721
  Serious: Yes (Other)
  Sender: FDA-Public Use
  Company Number: US-SUN PHARMACEUTICAL INDUSTRIES LTD-2022R1-334556

PATIENT
  Age: 71 Year
  Sex: Female

DRUGS (5)
  1. HYDROXYCHLOROQUINE [Suspect]
     Active Substance: HYDROXYCHLOROQUINE
     Indication: Skin lesion
     Dosage: 400 MILLIGRAM, DAILY
     Route: 065
  2. METHOTREXATE [Suspect]
     Active Substance: METHOTREXATE
     Indication: Skin lesion
     Dosage: 15 MILLIGRAM, WEEKLY
     Route: 065
  3. PREDNISONE [Suspect]
     Active Substance: PREDNISONE
     Indication: Skin lesion
     Dosage: 40 MILLIGRAM, DAILY
     Route: 065
  4. INFLIXIMAB [Suspect]
     Active Substance: INFLIXIMAB
     Indication: Skin lesion
     Dosage: 5 MILLIGRAM/KILOGRAM, SINGLE
     Route: 065
  5. TRIAMCINOLONE [Suspect]
     Active Substance: TRIAMCINOLONE
     Indication: Skin lesion
     Dosage: 0.1 PERCENT
     Route: 065

REACTIONS (1)
  - Condition aggravated [Unknown]
